FAERS Safety Report 18340227 (Version 1)
Quarter: 2020Q4

REPORT INFORMATION
  Report Type: Spontaneous
  Country: SE (occurrence: SE)
  Receive Date: 20201002
  Receipt Date: 20201002
  Transmission Date: 20210113
  Serious: Yes (Other)
  Sender: FDA-Public Use
  Company Number: SE-TEVA-2020-SE-1833490

PATIENT
  Age: 28 Year
  Sex: Female
  Weight: 56 kg

DRUGS (1)
  1. ISOTRETINOIN ACTAVIS 10 MG KAPSEL, MJUK [Suspect]
     Active Substance: ISOTRETINOIN
     Indication: ACNE
     Dosage: 4 TABLETS / DAY INITIALLY, THEN DOSE REDUCTION
     Dates: start: 20170901, end: 20180520

REACTIONS (6)
  - Periarthritis [Recovering/Resolving]
  - Arthralgia [Recovering/Resolving]
  - Joint stiffness [Recovering/Resolving]
  - Joint noise [Recovering/Resolving]
  - Myalgia [Recovering/Resolving]
  - Arthropathy [Recovering/Resolving]

NARRATIVE: CASE EVENT DATE: 201803
